FAERS Safety Report 5884341-7 (Version None)
Quarter: 2008Q3

REPORT INFORMATION
  Report Type: 
  Country: None (occurrence: None)
  Receive Date: 20080915
  Receipt Date: 20080903
  Transmission Date: 20090109
  Serious: No
  Sender: FDA-Public Use
  Company Number: JP-PFIZER INC-2008073781

PATIENT
  Age: 64 Year
  Sex: Male

DRUGS (6)
  1. CHANTIX [Suspect]
     Indication: SMOKING CESSATION THERAPY
     Dosage: DAILY DOSE:2MG
     Route: 048
     Dates: start: 20080822, end: 20080902
  2. MEIACT [Concomitant]
     Indication: RESPIRATORY TRACT INFECTION
     Route: 048
     Dates: start: 20080829, end: 20080901
  3. VOLTAREN [Concomitant]
     Indication: RESPIRATORY TRACT INFECTION
     Route: 048
     Dates: start: 20080829, end: 20080901
  4. BLOPRESS [Concomitant]
     Route: 048
     Dates: start: 20080818
  5. HARNAL [Concomitant]
     Route: 048
     Dates: start: 20080829
  6. ASPIRIN [Concomitant]
     Route: 048
     Dates: start: 20080829

REACTIONS (2)
  - ALANINE AMINOTRANSFERASE INCREASED [None]
  - ASPARTATE AMINOTRANSFERASE INCREASED [None]
